FAERS Safety Report 5864412-1 (Version None)
Quarter: 2008Q3

REPORT INFORMATION
  Report Type: 
  Country: None (occurrence: None)
  Receive Date: 20080829
  Receipt Date: 20080818
  Transmission Date: 20090109
  Serious: Yes (Other)
  Sender: FDA-Public Use
  Company Number: BR-ELI_LILLY_AND_COMPANY-BR200808003641

PATIENT
  Sex: Male
  Weight: 77 kg

DRUGS (1)
  1. CIALIS [Suspect]
     Indication: ERECTILE DYSFUNCTION
     Dosage: 20 MG, UNKNOWN
     Route: 048

REACTIONS (12)
  - BURN OESOPHAGEAL [None]
  - DECREASED APPETITE [None]
  - DEFORMITY [None]
  - DYSSTASIA [None]
  - FACIAL PALSY [None]
  - FLUSHING [None]
  - GASTRIC DISORDER [None]
  - HEADACHE [None]
  - HYPOTENSION [None]
  - MYALGIA [None]
  - RETCHING [None]
  - VISION BLURRED [None]
